FAERS Safety Report 6717694-8 (Version None)
Quarter: 2010Q2

REPORT INFORMATION
  Report Type: 
  Country: None (occurrence: None)
  Receive Date: 20100510
  Receipt Date: 20100429
  Transmission Date: 20101027
  Serious: Yes (Hospitalization)
  Sender: FDA-Public Use
  Company Number: FR-ROCHE-699903

PATIENT
  Sex: Female
  Weight: 70 kg

DRUGS (4)
  1. TRASTUZUMAB [Suspect]
     Indication: DRUG USE FOR UNKNOWN INDICATION
     Route: 065
  2. CAPECITABINE [Suspect]
     Dosage: 3600 MG, QD
     Route: 048
     Dates: start: 20091126
  3. LAPATINIB [Suspect]
     Dosage: 1250 MG, QD
     Route: 048
     Dates: start: 20091126
  4. NAVELBINE [Concomitant]
     Indication: DRUG USE FOR UNKNOWN INDICATION

REACTIONS (1)
  - ILEUS [None]
